FAERS Safety Report 8826902 (Version 2)
Quarter: 2012Q4

REPORT INFORMATION
  Report Type: 
  Country: DE (occurrence: DE)
  Receive Date: 20121005
  Receipt Date: 20121116
  Transmission Date: 20130627
  Serious: Yes (Other)
  Sender: FDA-Public Use
  Company Number: FR-ALEXION-A201201839

PATIENT
  Age: 43 Year
  Sex: Female

DRUGS (3)
  1. SOLIRIS 300MG [Suspect]
     Indication: HAEMOLYTIC URAEMIC SYNDROME
     Dosage: UNK, qw
     Route: 042
  2. SOLIRIS 300MG [Suspect]
     Dosage: UNK, every other month
     Route: 042
  3. INFLUENZA VACCINE [Suspect]
     Indication: IMMUNISATION

REACTIONS (2)
  - Haemolytic uraemic syndrome [Recovered/Resolved]
  - Condition aggravated [Recovered/Resolved]
